FAERS Safety Report 4660171-9 (Version None)
Quarter: 2005Q2

REPORT INFORMATION
  Report Type: 
  Country: None (occurrence: None)
  Receive Date: 20050419
  Receipt Date: 20040319
  Transmission Date: 20051028
  Serious: Yes (Hospitalization)
  Sender: FDA-Public Use
  Company Number: 20040300253

PATIENT
  Age: 82 Year
  Sex: Female
  Weight: 54 kg

DRUGS (3)
  1. HEPARIN [Suspect]
     Indication: DIALYSIS
     Dosage: 3000 OTHER ONCE IV
     Route: 042
     Dates: start: 20040312, end: 20040312
  2. EPOGEN [Concomitant]
  3. VENOFER [Concomitant]

REACTIONS (1)
  - ARTERIOVENOUS GRAFT SITE HAEMORRHAGE [None]
